FAERS Safety Report 5486023-2 (Version None)
Quarter: 2007Q4

REPORT INFORMATION
  Report Type: 
  Country: None (occurrence: None)
  Receive Date: 20071012
  Receipt Date: 20071001
  Transmission Date: 20080405
  Serious: Yes (Hospitalization, Other)
  Sender: FDA-Public Use
  Company Number: 2007SP020029

PATIENT
  Age: 44 Year
  Sex: Male

DRUGS (2)
  1. INTERFERON ALFA-2B RECOMBINANT (S-P) (INTERFERON ALFA-2B) [Suspect]
     Indication: HEPATITIS C
     Dosage: 3 MIU; TIW; SC
     Route: 058
     Dates: start: 20030901, end: 20040401
  2. RIBAVIRIN [Suspect]
     Indication: HEPATITIS C
     Dosage: 1200 MG; QD; PO
     Route: 048
     Dates: start: 20030901, end: 20040401

REACTIONS (16)
  - AGITATION [None]
  - AMIMIA [None]
  - APATHY [None]
  - CEREBRAL VENTRICULOGRAM ABNORMAL [None]
  - DELIRIUM [None]
  - DELUSIONAL DISORDER, PERSECUTORY TYPE [None]
  - DEMENTIA [None]
  - EMOTIONAL DISTRESS [None]
  - HALLUCINATION [None]
  - HALLUCINATION, AUDITORY [None]
  - IRRITABILITY [None]
  - MEMORY IMPAIRMENT [None]
  - PARKINSONISM [None]
  - POVERTY OF SPEECH [None]
  - PSYCHOTIC DISORDER [None]
  - SUICIDAL IDEATION [None]
